FAERS Safety Report 4821417-7 (Version None)
Quarter: 2005Q4

REPORT INFORMATION
  Report Type: 
  Country: None (occurrence: None)
  Receive Date: 20051103
  Receipt Date: 20051021
  Transmission Date: 20060501
  Serious: Yes (Other)
  Sender: FDA-Public Use
  Company Number: CHNY2005CA01943

PATIENT
  Age: 16 Year
  Sex: Female

DRUGS (2)
  1. TRIAMINIC EXPECT CHEST+HEAD CONG CITRUS (NCH)(PHENYLPROPANOLAMINE HYDR [Suspect]
  2. TRIAMINIC-DM (NCH)(PHENYLPROPANOLAMINE HYDROCHLORIDE, DEXTROMORPHAN HY [Suspect]

REACTIONS (1)
  - EPILEPSY [None]
